FAERS Safety Report 9230401 (Version 2)
Quarter: 2013Q2

REPORT INFORMATION
  Report Type: Spontaneous
  Country: US (occurrence: US)
  Receive Date: 20130415
  Receipt Date: 20130531
  Transmission Date: 20140414
  Serious: Yes (Other)
  Sender: FDA-Public Use
  Company Number: US-PFIZER INC-2013116897

PATIENT
  Age: 73 Year
  Sex: Female
  Weight: 91 kg

DRUGS (4)
  1. LYRICA [Suspect]
     Indication: DIABETIC NEUROPATHY
     Dosage: 100 MG, 1X/DAY
     Route: 048
     Dates: start: 2003
  2. COUMADIN [Concomitant]
     Dosage: 4 MG(TWO 2MG), 2X/DAY
  3. BUPROPION [Concomitant]
     Dosage: UNK
  4. ASPIRIN [Concomitant]
     Dosage: 81 MG, UNK

REACTIONS (13)
  - Urinary tract infection [Unknown]
  - Fluid retention [Unknown]
  - Gait disturbance [Unknown]
  - Limb discomfort [Unknown]
  - Insomnia [Unknown]
  - Burning sensation [Unknown]
  - Pain in extremity [Unknown]
  - Blood glucose increased [Unknown]
  - Fatigue [Unknown]
  - Expired drug administered [Unknown]
  - Drug ineffective [Unknown]
  - Blister [Unknown]
  - Dry skin [Unknown]
